FAERS Safety Report 13104012 (Version 2)
Quarter: 2017Q1

REPORT INFORMATION
  Report Type: Spontaneous
  Country: US (occurrence: US)
  Receive Date: 20170111
  Receipt Date: 20170331
  Transmission Date: 20170428
  Serious: Yes (Congenital Anomaly, Other)
  Sender: FDA-Public Use
  Company Number: PHEH2016US034221

PATIENT
  Sex: Female

DRUGS (2)
  1. ZOFRAN [Suspect]
     Active Substance: ONDANSETRON HYDROCHLORIDE
     Indication: FOETAL EXPOSURE DURING PREGNANCY
     Dosage: MOTHER^S DOSE: 2 DF, AS NEEDED (PRN)
     Route: 064
  2. ONDANSETRON AUROBINDO [Suspect]
     Active Substance: ONDANSETRON HYDROCHLORIDE
     Indication: FOETAL EXPOSURE DURING PREGNANCY
     Dosage: MOTHER^S DOSE: 2 DF, AS NEEDED (PRN)
     Route: 064

REACTIONS (6)
  - Otitis media chronic [Unknown]
  - Ear infection [Unknown]
  - Atrial septal defect [Unknown]
  - Sleep apnoea syndrome [Unknown]
  - Foetal exposure during pregnancy [Unknown]
  - Left-to-right cardiac shunt [Unknown]
